FAERS Safety Report 11155680 (Version 1)
Quarter: 2015Q2

REPORT INFORMATION
  Report Type: Spontaneous
  Country: US (occurrence: US)
  Receive Date: 20150602
  Receipt Date: 20150602
  Transmission Date: 20150821
  Serious: Yes (Death)
  Sender: FDA-Public Use
  Company Number: US-BAYER-2015-290253

PATIENT
  Age: 73 Year
  Sex: Male

DRUGS (1)
  1. MIRALAX [Suspect]
     Active Substance: POLYETHYLENE GLYCOL 3350
     Indication: CONSTIPATION
     Dosage: 10 CC, BID
     Route: 048

REACTIONS (2)
  - Product use issue [None]
  - Myocardial infarction [Fatal]

NARRATIVE: CASE EVENT DATE: 20021013
